FAERS Safety Report 7734203 (Version 2)
Quarter: 2014Q3

REPORT INFORMATION
  Report Type: Spontaneous
  Country: US (occurrence: US)
  Receive Date: 20101223
  Receipt Date: 20140721
  Transmission Date: 20150326
  Serious: Yes (Other)
  Sender: FDA-Public Use
  Company Number: US-ROCHE-727160

PATIENT
  Age: 20 Year
  Sex: Male
  Weight: 70.3 kg

DRUGS (4)
  1. ACCUTANE [Suspect]
     Active Substance: ISOTRETINOIN
     Route: 065
  2. PREDNISONE. [Concomitant]
     Active Substance: PREDNISONE
  3. ACCUTANE [Suspect]
     Active Substance: ISOTRETINOIN
     Route: 065
     Dates: start: 20020328, end: 200208
  4. ACCUTANE [Suspect]
     Active Substance: ISOTRETINOIN
     Indication: ACNE
     Route: 065

REACTIONS (20)
  - Sunburn [Unknown]
  - Dry skin [Unknown]
  - Depression [Unknown]
  - Chapped lips [Unknown]
  - Anaemia [Unknown]
  - Headache [Unknown]
  - Inflammatory bowel disease [Unknown]
  - Gastrointestinal injury [Unknown]
  - Blood triglycerides increased [Unknown]
  - Crohn^s disease [Unknown]
  - Photosensitivity reaction [Unknown]
  - Folliculitis [Unknown]
  - Haemorrhoids [Unknown]
  - Migraine [Unknown]
  - Colitis ulcerative [Unknown]
  - Weight decreased [Unknown]
  - Stress [Unknown]
  - Pruritus [Unknown]
  - Acne [Unknown]
  - Lip dry [Unknown]

NARRATIVE: CASE EVENT DATE: 2000
